FAERS Safety Report 21018857 (Version 3)
Quarter: 2022Q3

REPORT INFORMATION
  Report Type: Spontaneous
  Country: IT (occurrence: IT)
  Receive Date: 20220628
  Receipt Date: 20220712
  Transmission Date: 20221027
  Serious: Yes (Death, Other)
  Sender: FDA-Public Use
  Company Number: IT-STADA-251342

PATIENT
  Age: 17 Year
  Sex: Male

DRUGS (19)
  1. VELCADE [Suspect]
     Active Substance: BORTEZOMIB
     Indication: T-cell type acute leukaemia
     Dosage: UNK
     Route: 042
  2. CYTARABINE [Suspect]
     Active Substance: CYTARABINE
     Indication: T-cell type acute leukaemia
     Dosage: UNK
     Route: 037
  3. CYTARABINE [Suspect]
     Active Substance: CYTARABINE
     Indication: T-cell type acute leukaemia
     Dosage: UNK
     Route: 037
  4. DEXAMETHASONE [Suspect]
     Active Substance: DEXAMETHASONE
     Indication: T-cell type acute leukaemia
     Dosage: UNK
     Route: 065
  5. DEXAMETHASONE [Suspect]
     Active Substance: DEXAMETHASONE
     Dosage: UNK
     Route: 048
  6. DEXAMETHASONE [Suspect]
     Active Substance: DEXAMETHASONE
     Dosage: UNK
     Route: 042
  7. VINCRISTINE [Suspect]
     Active Substance: VINCRISTINE
     Indication: T-cell type acute leukaemia
     Dosage: UNK
     Route: 042
  8. METHOTREXATE [Suspect]
     Active Substance: METHOTREXATE
     Indication: T-cell type acute leukaemia
     Dosage: UNK
     Route: 065
  9. METHYLPREDNISOLONE [Suspect]
     Active Substance: METHYLPREDNISOLONE
     Indication: T-cell type acute leukaemia
     Dosage: UNK
     Route: 065
  10. PEGASPARGASE [Suspect]
     Active Substance: PEGASPARGASE
     Indication: T-cell type acute leukaemia
     Dosage: UNK
     Route: 030
  11. PEGASPARGASE [Suspect]
     Active Substance: PEGASPARGASE
     Indication: Acute lymphocytic leukaemia
  12. ANAKINRA [Suspect]
     Active Substance: ANAKINRA
     Indication: T-cell type acute leukaemia
     Dosage: 100 MILLIGRAM, BID
     Route: 058
  13. ANAKINRA [Suspect]
     Active Substance: ANAKINRA
     Dosage: 100 MILLIGRAM, QD
     Route: 058
  14. DOXORUBICIN [Suspect]
     Active Substance: DOXORUBICIN
     Indication: T-cell type acute leukaemia
     Dosage: UNK
     Route: 065
  15. DOXORUBICIN HYDROCHLORIDE [Suspect]
     Active Substance: DOXORUBICIN HYDROCHLORIDE
     Indication: T-cell type acute leukaemia
     Dosage: UNK
     Route: 042
  16. FLUDARABINE [Suspect]
     Active Substance: FLUDARABINE PHOSPHATE
     Indication: T-cell type acute leukaemia
     Dosage: UNK
     Route: 042
  17. METHOTREXATE [Concomitant]
     Active Substance: METHOTREXATE
     Indication: Product used for unknown indication
     Dosage: UNK
     Route: 065
  18. ANAKINRA [Concomitant]
     Active Substance: ANAKINRA
     Indication: Acute lymphocytic leukaemia
     Dosage: 100 MILLIGRAM, QD
     Route: 058
  19. DEXAMETHASONE [Concomitant]
     Active Substance: DEXAMETHASONE
     Indication: Acute lymphocytic leukaemia
     Dosage: UNK
     Route: 048

REACTIONS (10)
  - Cytopenia [Fatal]
  - Venoocclusive liver disease [Fatal]
  - Cytomegalovirus hepatitis [Fatal]
  - Cystitis haemorrhagic [Fatal]
  - Sepsis [Fatal]
  - Renal failure [Fatal]
  - Cardiac failure [Fatal]
  - Skin striae [Unknown]
  - Renal disorder [Unknown]
  - Hypertension [Unknown]
